FAERS Safety Report 8528529-5 (Version None)
Quarter: 2012Q3

REPORT INFORMATION
  Report Type: 
  Country: None (occurrence: None)
  Receive Date: 20120716
  Receipt Date: 20120716
  Transmission Date: 20120928
  Serious: Yes (Disabling, Other)
  Sender: FDA-Public Use
  Company Number: None

PATIENT
  Age: 62 Year
  Sex: Male
  Weight: 65.7716 kg

DRUGS (1)
  1. PROPECIA [Suspect]
     Indication: ALOPECIA
     Dosage: 1MG  DAILY PO
     Route: 048
     Dates: start: 20090101, end: 20120501

REACTIONS (6)
  - TESTICULAR DISORDER [None]
  - SCROTAL DISORDER [None]
  - ANORGASMIA [None]
  - PENILE SIZE REDUCED [None]
  - EJACULATION FAILURE [None]
  - ERECTILE DYSFUNCTION [None]
